FAERS Safety Report 7456202-3 (Version None)
Quarter: 2011Q2

REPORT INFORMATION
  Report Type: 
  Country: None (occurrence: None)
  Receive Date: 20110426
  Receipt Date: 20110411
  Transmission Date: 20111010
  Serious: Yes (Other)
  Sender: FDA-Public Use
  Company Number: 11-024-03

PATIENT
  Age: 1 Year
  Sex: Female

DRUGS (1)
  1. LEVETIRACETAM [Suspect]
     Indication: ACCIDENTAL OVERDOSE
     Dosage: 600 MG;X1;PO
     Route: 048

REACTIONS (6)
  - SOMNOLENCE [None]
  - CONVULSION [None]
  - CONFUSIONAL STATE [None]
  - DIZZINESS [None]
  - ACCIDENTAL DRUG INTAKE BY CHILD [None]
  - ATAXIA [None]
